FAERS Safety Report 4888596-7 (Version None)
Quarter: 2005Q4

REPORT INFORMATION
  Report Type: 
  Country: None (occurrence: None)
  Receive Date: 20051215
  Receipt Date: 20041129
  Transmission Date: 20060501
  Serious: Yes (Other)
  Sender: FDA-Public Use
  Company Number: 2004107896

PATIENT
  Sex: Female
  Weight: 92.5338 kg

DRUGS (8)
  1. BEXTRA [Suspect]
     Indication: ARTHRITIS
     Dosage: 20 MG (20 MG 1 IN 1 D) ORAL
     Route: 048
     Dates: start: 20040101, end: 20040101
  2. CELECOXIB (CELECOXIB) [Concomitant]
  3. METOPROLOL (METOPROLOL) [Concomitant]
  4. TELMISARTAN (TELMISARTAN) [Concomitant]
  5. ROSUVASTATIN (ROSUVASTATIN) [Concomitant]
  6. EZETIMIBE (EZETIMIBE) [Concomitant]
  7. ACETYLSALICYLIC ACID SRT [Concomitant]
  8. TIMOLOL MALEATE [Concomitant]

REACTIONS (2)
  - CHEST PAIN [None]
  - NON-CARDIAC CHEST PAIN [None]
